FAERS Safety Report 8854803 (Version 2)
Quarter: 2012Q4

REPORT INFORMATION
  Report Type: 
  Country: US (occurrence: US)
  Receive Date: 20121023
  Receipt Date: 20121026
  Transmission Date: 20130627
  Serious: Yes (Death, Hospitalization, Other)
  Sender: FDA-Public Use
  Company Number: PHEH2012US020685

PATIENT
  Sex: Male

DRUGS (1)
  1. MYFORTIC [Suspect]
     Dosage: 180 mg, BID (two tablets)
     Route: 048
     Dates: start: 20091113, end: 20120307

REACTIONS (5)
  - Sepsis [Fatal]
  - Arrhythmia [Unknown]
  - Respiratory failure [Unknown]
  - Hypotension [Unknown]
  - Lung neoplasm malignant [Unknown]
